FAERS Safety Report 7636883-1 (Version None)
Quarter: 2011Q3

REPORT INFORMATION
  Report Type: 
  Country: None (occurrence: None)
  Receive Date: 20110712
  Receipt Date: 20110624
  Transmission Date: 20111222
  Serious: Yes (Death)
  Sender: FDA-Public Use
  Company Number: 11-0933

PATIENT
  Age: 58 Year
  Sex: Female

DRUGS (2)
  1. BOCOUTURE(INJECTION)(CLOSTRIDIUM BOTULINUM NEUROTOXIN TYPE A FREE OF C [Suspect]
     Indication: SKIN WRINKLING
     Dosage: (10 IU,1 IN 1 TOTAL) SUBCUTANEOUS,  (1 IN 1 TOTAL)   SUBCUTANEOUS
     Route: 058
     Dates: start: 20110318, end: 20110318
  2. PROZAC [Concomitant]

REACTIONS (6)
  - PARAESTHESIA [None]
  - HYPOTENSION [None]
  - PRURITUS [None]
  - ASTHENIA [None]
  - BRADYCARDIA [None]
  - DYSPHAGIA [None]
